FAERS Safety Report 8068620-3 (Version None)
Quarter: 2012Q1

REPORT INFORMATION
  Report Type: 
  Country: None (occurrence: None)
  Receive Date: 20120124
  Receipt Date: 20111115
  Transmission Date: 20120608
  Serious: No
  Sender: FDA-Public Use
  Company Number: US-AMGEN-USASP2011060184

PATIENT
  Age: 77 Year
  Sex: Female

DRUGS (9)
  1. IRON [Concomitant]
     Dosage: UNK
  2. PROLIA [Suspect]
     Indication: OSTEOPOROSIS POSTMENOPAUSAL
     Dosage: 60 MG, Q6MO
     Dates: start: 20101201
  3. HYZAAR [Concomitant]
     Dosage: UNK
  4. CALCITRIOL [Concomitant]
     Dosage: UNK
  5. POTASSIUM CHLORIDE [Concomitant]
     Dosage: UNK
  6. AMLODIPINE [Concomitant]
     Dosage: UNK
  7. ZETIA [Concomitant]
     Dosage: UNK
  8. TRAMADOL HCL [Concomitant]
     Dosage: UNK
  9. ASPIRIN [Concomitant]
     Dosage: 1 MG, QD

REACTIONS (1)
  - BLOOD CREATININE INCREASED [None]
